FAERS Safety Report 23452674 (Version 1)
Quarter: 2024Q1

REPORT INFORMATION
  Report Type: Spontaneous
  Country: US (occurrence: None)
  Receive Date: 20240129
  Receipt Date: 20240129
  Transmission Date: 20240410
  Serious: No
  Sender: FDA-Public Use
  Company Number: None

PATIENT
  Age: 41 Year
  Sex: Male
  Weight: 72 kg

DRUGS (3)
  1. SUBOXONE [Suspect]
     Active Substance: BUPRENORPHINE HYDROCHLORIDE\NALOXONE HYDROCHLORIDE
     Indication: Drug abuse
     Dosage: OTHER QUANTITY : 3 STRIPS;?FREQUENCY : EVERY 8 HOURS;?
     Route: 060
  2. SUBUTEX [Concomitant]
     Active Substance: BUPRENORPHINE HYDROCHLORIDE
  3. FISH OIL [Concomitant]
     Active Substance: FISH OIL

REACTIONS (2)
  - Dental caries [None]
  - Tooth loss [None]

NARRATIVE: CASE EVENT DATE: 20151111
